FAERS Safety Report 8376143-7 (Version None)
Quarter: 2012Q2

REPORT INFORMATION
  Report Type: 
  Country: None (occurrence: None)
  Receive Date: 20120522
  Receipt Date: 20120517
  Transmission Date: 20120825
  Serious: Yes (Other)
  Sender: FDA-Public Use
  Company Number: PHHY2012JP042998

PATIENT
  Sex: Female

DRUGS (2)
  1. ZOMETA [Suspect]
     Indication: BONE DENSITY ABNORMAL
     Dosage: ONCE EVERY SIX MONTH
     Route: 041
  2. FEMARA [Concomitant]
     Indication: BREAST CANCER

REACTIONS (4)
  - TEMPOROMANDIBULAR JOINT SYNDROME [None]
  - MASTICATION DISORDER [None]
  - STRESS [None]
  - BRUXISM [None]
